FAERS Safety Report 23521685 (Version 1)
Quarter: 2024Q1

REPORT INFORMATION
  Report Type: Spontaneous
  Country: US (occurrence: None)
  Receive Date: 20240212
  Receipt Date: 20240212
  Transmission Date: 20240410
  Serious: Yes (Hospitalization)
  Sender: FDA-Public Use
  Company Number: None

PATIENT
  Age: 69 Year
  Sex: Female
  Weight: 72.4 kg

DRUGS (2)
  1. IRINOTECAN [Suspect]
     Active Substance: IRINOTECAN
     Dosage: 332 MG ONCE  INTRAVENOUS
     Route: 042
     Dates: start: 20240115, end: 20240207
  2. LEUCOVORIN [Suspect]
     Active Substance: LEUCOVORIN\LEUCOVORIN CALCIUM
     Dates: start: 20240115, end: 20240207

REACTIONS (2)
  - Adverse drug reaction [None]
  - Infusion related reaction [None]

NARRATIVE: CASE EVENT DATE: 20240207
